FAERS Safety Report 23438210 (Version 1)
Quarter: 2024Q1

REPORT INFORMATION
  Report Type: Spontaneous
  Country: US (occurrence: US)
  Receive Date: 20240124
  Receipt Date: 20240124
  Transmission Date: 20240410
  Serious: No
  Sender: FDA-Public Use
  Company Number: US-PERRIGO-23US012465

PATIENT
  Age: 55 Year
  Sex: Female
  Weight: 62.585 kg

DRUGS (7)
  1. IBUPROFEN AND DIPHENHYDRAMINE CITRATE [Suspect]
     Active Substance: DIPHENHYDRAMINE CITRATE\IBUPROFEN
     Indication: Insomnia
     Dosage: 476 MG, QHS
     Route: 048
     Dates: start: 20231022, end: 20231023
  2. MUPIROCIN [Concomitant]
     Active Substance: MUPIROCIN
     Indication: Dry skin
     Dosage: UNK
     Route: 065
     Dates: start: 20230901
  3. LYRICA [Concomitant]
     Active Substance: PREGABALIN
     Indication: Neuralgia
     Dosage: 100 MG, UNK
     Route: 065
     Dates: start: 202308
  4. CYMBALTA [Concomitant]
     Active Substance: DULOXETINE HYDROCHLORIDE
     Indication: Depression
     Dosage: 30 MG, BID
     Route: 065
  5. CYMBALTA [Concomitant]
     Active Substance: DULOXETINE HYDROCHLORIDE
     Indication: Pain
     Dosage: 60 MG, BID
     Route: 065
  6. VIMPAT [Concomitant]
     Active Substance: LACOSAMIDE
     Indication: Seizure
     Dosage: 100 MG, UNK
     Route: 065
     Dates: start: 2021
  7. TOPAMAX [Concomitant]
     Active Substance: TOPIRAMATE
     Indication: Migraine
     Dosage: 50 MG, UNK
     Route: 065
     Dates: start: 202306

REACTIONS (1)
  - Swollen tongue [Recovered/Resolved]

NARRATIVE: CASE EVENT DATE: 20231023
